FAERS Safety Report 4518303-9 (Version None)
Quarter: 2004Q4

REPORT INFORMATION
  Report Type: 
  Country: None (occurrence: None)
  Receive Date: 20041202
  Receipt Date: 20041130
  Transmission Date: 20050328
  Serious: Yes (Hospitalization, Other)
  Sender: FDA-Public Use
  Company Number: 200413947BCC

PATIENT
  Age: 81 Year
  Sex: Female
  Weight: 48.9885 kg

DRUGS (2)
  1. MILK OF MAGNESIA TAB [Suspect]
     Indication: CONSTIPATION
     Dosage: 2.5 ML, QD, ORAL
     Route: 048
  2. METAMUCIL-2 [Concomitant]

REACTIONS (2)
  - ASTHENIA [None]
  - LOSS OF CONSCIOUSNESS [None]
